FAERS Safety Report 13896624 (Version 1)
Quarter: 2017Q3

REPORT INFORMATION
  Report Type: Spontaneous
  Country: CA (occurrence: CA)
  Receive Date: 20170823
  Receipt Date: 20170823
  Transmission Date: 20171127
  Serious: Yes (Life-Threatening, Hospitalization, Other)
  Sender: FDA-Public Use
  Company Number: CA-JNJFOC-20170817964

PATIENT
  Age: 52 Year
  Sex: Female
  Weight: 73 kg

DRUGS (5)
  1. INSULIN [Concomitant]
     Active Substance: INSULIN NOS
     Route: 065
  2. INVOKANA [Suspect]
     Active Substance: CANAGLIFLOZIN
     Indication: TYPE 2 DIABETES MELLITUS
     Route: 048
  3. LORAZEPAM. [Concomitant]
     Active Substance: LORAZEPAM
     Route: 065
  4. PREGABALIN. [Concomitant]
     Active Substance: PREGABALIN
     Route: 065
  5. ROSUVASTATIN. [Concomitant]
     Active Substance: ROSUVASTATIN
     Route: 065

REACTIONS (2)
  - Diabetic ketoacidosis [Recovered/Resolved]
  - Blood glucose normal [Recovered/Resolved]
